FAERS Safety Report 9876916 (Version 2)
Quarter: 2014Q1

REPORT INFORMATION
  Report Type: Spontaneous
  Country: US (occurrence: US)
  Receive Date: 20140206
  Receipt Date: 20140206
  Transmission Date: 20141002
  Serious: Yes (Hospitalization)
  Sender: FDA-Public Use
  Company Number: US-ROCHE-1310248

PATIENT
  Age: 66 Year
  Sex: Female
  Weight: 76.27 kg

DRUGS (6)
  1. XELODA [Suspect]
     Indication: BREAST CANCER
     Dosage: FORM STRENGTH: 500 MG
     Route: 048
     Dates: start: 20131023, end: 20131127
  2. XELODA [Suspect]
     Dosage: 3 TABS?14 DAYS ON, 7 OFF
     Route: 048
     Dates: start: 20131127, end: 20131224
  3. XELODA [Suspect]
     Route: 048
  4. MELATONIN [Concomitant]
  5. ZOLPIDEM [Concomitant]
  6. CLORAZEPATE [Concomitant]
     Route: 048

REACTIONS (7)
  - Paraesthesia [Unknown]
  - Skin fissures [Unknown]
  - Erythema [Unknown]
  - Diarrhoea [Recovering/Resolving]
  - Nausea [Recovering/Resolving]
  - Infection [Recovered/Resolved]
  - Implant site reaction [Recovered/Resolved]
